FAERS Safety Report 20455927 (Version 3)
Quarter: 2022Q1

REPORT INFORMATION
  Report Type: Report from Study
  Country: US (occurrence: US)
  Receive Date: 20220210
  Receipt Date: 20220310
  Transmission Date: 20220424
  Serious: Yes (Hospitalization)
  Sender: FDA-Public Use
  Company Number: US-BAYER-2022A003669

PATIENT
  Age: 67 Year
  Sex: Female
  Weight: 46.712 kg

DRUGS (6)
  1. ADEMPAS [Suspect]
     Active Substance: RIOCIGUAT
     Indication: Pulmonary arterial hypertension
     Dosage: UNK
     Dates: start: 20210707
  2. ADEMPAS [Suspect]
     Active Substance: RIOCIGUAT
     Indication: Pulmonary arterial hypertension
     Dosage: 1 MG, BID
     Route: 048
  3. ADEMPAS [Suspect]
     Active Substance: RIOCIGUAT
     Indication: Pulmonary arterial hypertension
     Dosage: 1 MG, TID
     Route: 048
  4. ADEMPAS [Suspect]
     Active Substance: RIOCIGUAT
     Indication: Pulmonary arterial hypertension
     Dosage: 1 MG, BID
     Route: 048
  5. ADEMPAS [Suspect]
     Active Substance: RIOCIGUAT
     Indication: Pulmonary arterial hypertension
     Dosage: 1 MG, TID
     Route: 048
  6. ELIQUIS [Concomitant]
     Active Substance: APIXABAN

REACTIONS (8)
  - Haemoglobin decreased [None]
  - Hospitalisation [None]
  - Hospitalisation [None]
  - Dizziness [Not Recovered/Not Resolved]
  - Seasonal allergy [Recovered/Resolved]
  - Nausea [Not Recovered/Not Resolved]
  - Inappropriate schedule of product administration [None]
  - Clumsiness [None]

NARRATIVE: CASE EVENT DATE: 20220201
